FAERS Safety Report 4897617-7 (Version None)
Quarter: 2006Q1

REPORT INFORMATION
  Report Type: 
  Country: None (occurrence: None)
  Receive Date: 20060201
  Receipt Date: 20060125
  Transmission Date: 20060701
  Serious: Yes (Hospitalization)
  Sender: FDA-Public Use
  Company Number: US-JNJFOC-20060105802

PATIENT
  Sex: Female
  Weight: 38.56 kg

DRUGS (2)
  1. DURAGESIC-100 [Suspect]
     Indication: CANCER PAIN
     Route: 062
  2. BLOOD PRESSURE MEDICATION [Concomitant]

REACTIONS (3)
  - APPLICATION SITE REACTION [None]
  - MYOCARDIAL INFARCTION [None]
  - WEIGHT DECREASED [None]
